FAERS Safety Report 8790977 (Version 1)
Quarter: 2012Q4

REPORT INFORMATION
  Report Type: Spontaneous
  Country: US (occurrence: None)
  Receive Date: 20120910
  Receipt Date: 20120910
  Transmission Date: 20130627
  Serious: Yes (Hospitalization)
  Sender: FDA-Public Use
  Company Number: TPA2012A05925

PATIENT
  Age: 65 Year
  Sex: Male
  Weight: 116.12 kg

DRUGS (5)
  1. EDARBYCLOR [Suspect]
     Indication: REFRACTORY HYPERTENSION
     Route: 048
     Dates: start: 20120618, end: 20120731
  2. ATORVASTATIN [Concomitant]
  3. FENOFIBRATE [Concomitant]
  4. METFORMIN [Concomitant]
  5. PRILOSEC (OMEPRAZOLE) [Concomitant]

REACTIONS (3)
  - Hypotension [None]
  - Chest pain [None]
  - Hyperaldosteronism [None]
